FAERS Safety Report 8444065-9 (Version None)
Quarter: 2012Q2

REPORT INFORMATION
  Report Type: 
  Country: None (occurrence: None)
  Receive Date: 20120618
  Receipt Date: 20120613
  Transmission Date: 20120825
  Serious: Yes (Hospitalization)
  Sender: FDA-Public Use
  Company Number: PHHO2012FR008912

PATIENT
  Sex: Male

DRUGS (3)
  1. CELL CEPT [Concomitant]
     Indication: RENAL TRANSPLANT
     Dosage: 3 G, QD
     Route: 048
     Dates: start: 20120517, end: 20120608
  2. PREDNISOLONE [Concomitant]
     Indication: RENAL TRANSPLANT
     Dosage: 50 MG, QD
     Route: 048
     Dates: start: 20120517, end: 20120608
  3. ZORTRESS [Suspect]
     Indication: RENAL TRANSPLANT
     Dosage: 6 MG, QD
     Route: 048
     Dates: start: 20120521, end: 20120608

REACTIONS (3)
  - SMALL INTESTINAL OBSTRUCTION [None]
  - THROMBOCYTOPENIA [None]
  - LEUKOPENIA [None]
